FAERS Safety Report 16039810 (Version 2)
Quarter: 2019Q2

REPORT INFORMATION
  Report Type: Spontaneous
  Country: US (occurrence: US)
  Receive Date: 20190306
  Receipt Date: 20190530
  Transmission Date: 20190711
  Serious: No
  Sender: FDA-Public Use
  Company Number: US-GLAXOSMITHKLINE-US2019036996

PATIENT
  Sex: Male

DRUGS (2)
  1. OXYGEN THERAPY [Concomitant]
     Active Substance: OXYGEN
     Indication: DYSPNOEA
     Dosage: UNK
  2. NUCALA [Suspect]
     Active Substance: MEPOLIZUMAB
     Indication: PRODUCT USED FOR UNKNOWN INDICATION
     Dosage: UNK
     Route: 058

REACTIONS (5)
  - Fatigue [Unknown]
  - Dyspnoea [Unknown]
  - Feeling abnormal [Unknown]
  - Oxygen therapy [Unknown]
  - Genital herpes [Unknown]
